FAERS Safety Report 13698022 (Version 2)
Quarter: 2017Q3

REPORT INFORMATION
  Report Type: Spontaneous
  Country: JP (occurrence: JP)
  Receive Date: 20170628
  Receipt Date: 20170802
  Transmission Date: 20171127
  Serious: Yes (Hospitalization)
  Sender: FDA-Public Use
  Company Number: JP-EISAI MEDICAL RESEARCH-EC-2017-026742

PATIENT
  Age: 85 Year
  Sex: Female

DRUGS (2)
  1. LENVIMA [Suspect]
     Active Substance: LENVATINIB
     Route: 048
     Dates: start: 20170324, end: 20170410
  2. LENVIMA [Suspect]
     Active Substance: LENVATINIB
     Indication: THYROID CANCER
     Route: 048
     Dates: start: 20160405, end: 201703

REACTIONS (3)
  - Paronychia [Unknown]
  - Ingrowing nail [Unknown]
  - Proteinuria [Recovering/Resolving]

NARRATIVE: CASE EVENT DATE: 20170206
